FAERS Safety Report 23552631 (Version 1)
Quarter: 2024Q1

REPORT INFORMATION
  Report Type: Spontaneous
  Country: IT (occurrence: IT)
  Receive Date: 20240222
  Receipt Date: 20240222
  Transmission Date: 20240410
  Serious: Yes (Other)
  Sender: FDA-Public Use
  Company Number: None

PATIENT
  Age: 53 Year
  Sex: Female

DRUGS (5)
  1. FLUOROURACIL [Suspect]
     Active Substance: FLUOROURACIL
     Indication: Colon cancer metastatic
     Dosage: 5-FLUOROURACILE, START OF THERAPY 22/08 - THERAPY EVERY 14 DAYS - 6 CYCLE
     Route: 042
     Dates: start: 20231103, end: 20231103
  2. FLUOROURACIL [Suspect]
     Active Substance: FLUOROURACIL
     Indication: Colon cancer metastatic
     Dosage: 5-FLUOROURACILE, START OF THERAPY 22/08 - THERAPY EVERY 14 DAYS - 6 CYCLE
     Route: 042
     Dates: start: 20231103, end: 20231103
  3. IRINOTECAN [Suspect]
     Active Substance: IRINOTECAN
     Indication: Colon cancer metastatic
     Dosage: START OF THERAPY 22/08 - THERAPY EVERY 14 DAYS - 6 CYCLE
     Route: 042
     Dates: start: 20231103, end: 20231103
  4. LEVOLEUCOVORIN [Concomitant]
     Active Substance: LEVOLEUCOVORIN
     Indication: Product used for unknown indication
     Dosage: ACIDO LEVO FOLINICO
     Route: 065
  5. AFLIBERCEPT [Suspect]
     Active Substance: AFLIBERCEPT
     Indication: Colon cancer metastatic
     Dosage: START OF THERAPY 22/08 - THERAPY EVERY 14 DAYS - 6 CYCLE
     Route: 042
     Dates: start: 20231103, end: 20231103

REACTIONS (4)
  - Thrombocytopenia [Recovering/Resolving]
  - Diarrhoea [Recovered/Resolved]
  - Urinary tract infection [Recovering/Resolving]
  - Alanine aminotransferase increased [Recovering/Resolving]

NARRATIVE: CASE EVENT DATE: 20231101
